FAERS Safety Report 8201634-9 (Version None)
Quarter: 2012Q1

REPORT INFORMATION
  Report Type: 
  Country: None (occurrence: None)
  Receive Date: 20120312
  Receipt Date: 20120306
  Transmission Date: 20120608
  Serious: No
  Sender: FDA-Public Use
  Company Number: US-PFIZER INC-2012060644

PATIENT

DRUGS (11)
  1. METOPROLOL SUCCINATE [Suspect]
     Indication: HYPERTENSION
     Dosage: 50 MG, DAILY
     Dates: start: 20120120
  2. ELAVIL [Concomitant]
     Dosage: UNK
  3. OXYBUTYNIN [Concomitant]
     Dosage: 5 MG
     Dates: end: 20120127
  4. MICRONOR [Concomitant]
     Dosage: UNK
     Dates: end: 20120209
  5. EFFEXOR XR [Suspect]
     Dosage: 150 MG, 1X/DAY (1 CAP PO NIGHTLY)
     Route: 048
  6. DEXIDRINE [Concomitant]
     Dosage: UNK
     Dates: start: 20120121
  7. LEXAPRO [Suspect]
     Dosage: 60 MG, DAILY
     Dates: start: 20120114
  8. NICODERM [Concomitant]
     Dosage: UNK
  9. ATIVAN [Concomitant]
     Dosage: 0.5 MG 1 1/2/DAY
  10. EFFEXOR XR [Suspect]
     Dosage: 75 MG, 1X/DAY (1 CAP PO NIGHTLY)
     Route: 048
  11. LEXAPRO [Suspect]
     Dosage: UNK

REACTIONS (12)
  - ANGER [None]
  - NICOTINE DEPENDENCE [None]
  - DEPRESSION [None]
  - OBSESSIVE THOUGHTS [None]
  - ONYCHOPHAGIA [None]
  - CRYING [None]
  - BLOOD PRESSURE DECREASED [None]
  - APATHY [None]
  - HUNGER [None]
  - ANXIETY [None]
  - FEELING ABNORMAL [None]
  - WEIGHT INCREASED [None]
